FAERS Safety Report 8678292 (Version 3)
Quarter: 2014Q2

REPORT INFORMATION
  Report Type: Report from Study
  Country: US (occurrence: US)
  Receive Date: 20120723
  Receipt Date: 20140429
  Transmission Date: 20141212
  Serious: Yes (Death, Hospitalization)
  Sender: FDA-Public Use
  Company Number: US-ACTELION-A-NJ2012-68860

PATIENT
  Age: 51 Year
  Sex: Female

DRUGS (2)
  1. TRACLEER [Suspect]
     Indication: PULMONARY ARTERIAL HYPERTENSION
     Dosage: UNK
     Route: 048
     Dates: start: 200701
  2. SILDENAFIL [Concomitant]

REACTIONS (5)
  - Death [Fatal]
  - Disease progression [Unknown]
  - Oedema [Unknown]
  - Tachycardia [Recovering/Resolving]
  - Right ventricular failure [Recovering/Resolving]
